FAERS Safety Report 5305013-3 (Version None)
Quarter: 2007Q2

REPORT INFORMATION
  Report Type: 
  Country: None (occurrence: None)
  Receive Date: 20070423
  Receipt Date: 20070413
  Transmission Date: 20071010
  Serious: Yes (Other)
  Sender: FDA-Public Use
  Company Number: US-PFIZER INC-2007019642

PATIENT
  Sex: Male
  Weight: 90.7 kg

DRUGS (2)
  1. BEXTRA [Suspect]
     Indication: OSTEOARTHRITIS
     Route: 048
  2. ACETYLSALICYLIC ACID SRT [Concomitant]
     Dosage: DAILY DOSE:5000MG-FREQ:IN DIVIDED DOSES OF EVERY 4 TO 6 HOURS

REACTIONS (7)
  - BALANCE DISORDER [None]
  - COORDINATION ABNORMAL [None]
  - FALL [None]
  - HIP ARTHROPLASTY [None]
  - NEUROPATHY PERIPHERAL [None]
  - PATELLA FRACTURE [None]
  - PERONEAL NERVE PALSY [None]
